FAERS Safety Report 5942353-9 (Version None)
Quarter: 2008Q4

REPORT INFORMATION
  Report Type: 
  Country: None (occurrence: None)
  Receive Date: 20081105
  Receipt Date: 20081031
  Transmission Date: 20090506
  Serious: Yes (Hospitalization)
  Sender: FDA-Public Use
  Company Number: CH-AMGEN-UK307205

PATIENT
  Sex: Female
  Weight: 55 kg

DRUGS (2)
  1. ARANESP [Suspect]
     Indication: ANAEMIA OF MALIGNANT DISEASE
     Route: 065
     Dates: start: 20080429, end: 20080429
  2. VENOFER [Concomitant]
     Route: 042
     Dates: start: 20080429, end: 20080429

REACTIONS (1)
  - CONVULSION [None]
